FAERS Safety Report 4925789-4 (Version None)
Quarter: 2006Q1

REPORT INFORMATION
  Report Type: 
  Country: None (occurrence: None)
  Receive Date: 20060228
  Receipt Date: 20050321
  Transmission Date: 20060701
  Serious: Yes (Hospitalization)
  Sender: FDA-Public Use
  Company Number: US-GLAXOSMITHKLINE-A0550838A

PATIENT
  Age: 38 Year
  Sex: Female

DRUGS (1)
  1. LAMICTAL [Suspect]
     Indication: BIPOLAR DISORDER
     Route: 048
     Dates: start: 20050301, end: 20050301

REACTIONS (4)
  - MOUTH ULCERATION [None]
  - PULMONARY OEDEMA [None]
  - PYREXIA [None]
  - STEVENS-JOHNSON SYNDROME [None]
